FAERS Safety Report 9086513 (Version 1)
Quarter: 2013Q1

REPORT INFORMATION
  Report Type: Report from Study
  Country: US (occurrence: US)
  Receive Date: 20130131
  Receipt Date: 20130131
  Transmission Date: 20140127
  Serious: Yes (Other)
  Sender: FDA-Public Use
  Company Number: US-ABBOTT-12P-163-0933638-00

PATIENT
  Sex: Female
  Weight: 81.72 kg

DRUGS (7)
  1. HUMIRA 40 MG/0.8 ML PEN [Suspect]
     Indication: RHEUMATOID ARTHRITIS
     Dates: start: 20120326
  2. HUMIRA 40 MG/0.8 ML PEN [Suspect]
     Indication: PSORIATIC ARTHROPATHY
  3. NEURONTIN [Concomitant]
     Indication: FIBROMYALGIA
  4. NEURONTIN [Concomitant]
  5. PREDNISONE [Concomitant]
     Indication: RHEUMATOID ARTHRITIS
  6. PROZAC [Concomitant]
     Indication: DEPRESSION
  7. KLONAPIN [Concomitant]
     Indication: ANXIETY

REACTIONS (2)
  - Hepatitis C [Not Recovered/Not Resolved]
  - Hepatic enzyme increased [Unknown]
